FAERS Safety Report 16532673 (Version 6)
Quarter: 2022Q2

REPORT INFORMATION
  Report Type: Spontaneous
  Country: US (occurrence: US)
  Receive Date: 20190705
  Receipt Date: 20220527
  Transmission Date: 20220721
  Serious: Yes (Death, Other)
  Sender: FDA-Public Use
  Company Number: US-NOVARTISPH-PHHY2019US152565

PATIENT
  Sex: Female

DRUGS (1)
  1. KYMRIAH [Suspect]
     Active Substance: TISAGENLECLEUCEL
     Indication: Acute lymphocytic leukaemia
     Dosage: UNK, ONCE/SINGLE
     Route: 042
     Dates: start: 20190318, end: 20190318

REACTIONS (3)
  - Acute lymphocytic leukaemia recurrent [Fatal]
  - Malignant neoplasm progression [Fatal]
  - Blast cell count increased [Unknown]
